FAERS Safety Report 6084183-6 (Version None)
Quarter: 2009Q1

REPORT INFORMATION
  Report Type: 
  Country: None (occurrence: None)
  Receive Date: 20090219
  Receipt Date: 20090209
  Transmission Date: 20090719
  Serious: Yes (Other)
  Sender: FDA-Public Use
  Company Number: FR-TEVA-185621ISR

PATIENT
  Sex: Female

DRUGS (1)
  1. COPAXONE [Suspect]
     Indication: MULTIPLE SCLEROSIS
     Route: 058

REACTIONS (5)
  - CONFUSIONAL STATE [None]
  - DEMENTIA [None]
  - HALLUCINATION [None]
  - MEMORY IMPAIRMENT [None]
  - SPEECH DISORDER [None]
